FAERS Safety Report 10181284 (Version 2)
Quarter: 2014Q2

REPORT INFORMATION
  Report Type: Spontaneous
  Country: US (occurrence: US)
  Receive Date: 20140519
  Receipt Date: 20140519
  Transmission Date: 20141212
  Serious: No
  Sender: FDA-Public Use
  Company Number: US-AMGEN INC.-USASP2014029194

PATIENT
  Sex: Female
  Weight: 76.01 kg

DRUGS (2)
  1. PROLIA [Suspect]
     Indication: OSTEOPOROSIS POSTMENOPAUSAL
     Dosage: UNK
     Route: 065
  2. SYNTHROID [Concomitant]
     Indication: HYPOTHYROIDISM
     Dosage: 150 MUG, UNK
     Route: 048

REACTIONS (4)
  - Lichenoid keratosis [Recovering/Resolving]
  - Skin irritation [Recovering/Resolving]
  - Drug hypersensitivity [Not Recovered/Not Resolved]
  - Rash [Recovering/Resolving]
